FAERS Safety Report 6086820-9 (Version None)
Quarter: 2009Q1

REPORT INFORMATION
  Report Type: 
  Country: None (occurrence: None)
  Receive Date: 20090223
  Receipt Date: 20090210
  Transmission Date: 20090719
  Serious: Yes (Other)
  Sender: FDA-Public Use
  Company Number: GB-PFIZER INC-2006135591

PATIENT

DRUGS (3)
  1. PIROXICAM [Suspect]
  2. ACETYLSALICYLIC ACID SRT [Interacting]
  3. DIPYRIDAMOLE [Interacting]
     Route: 048

REACTIONS (3)
  - DRUG INTERACTION [None]
  - EYE HAEMORRHAGE [None]
  - VITREOUS HAEMORRHAGE [None]
